FAERS Safety Report 5017379-2 (Version None)
Quarter: 2006Q2

REPORT INFORMATION
  Report Type: 
  Country: None (occurrence: None)
  Receive Date: 20060601
  Receipt Date: 20060601
  Transmission Date: 20061013
  Serious: Yes (Other)
  Sender: FDA-Public Use
  Company Number: None

PATIENT
  Age: 44 Year
  Sex: Female
  Weight: 64.8644 kg

DRUGS (3)
  1. LEVAQUIN [Suspect]
     Indication: CYSTITIS
     Dosage: 500MG   ONCE A DAY  PO
     Route: 048
     Dates: start: 20060522, end: 20060529
  2. LEVAQUIN [Suspect]
     Indication: POST PROCEDURAL COMPLICATION
     Dosage: 500MG   ONCE A DAY  PO
     Route: 048
     Dates: start: 20060522, end: 20060529
  3. C [Interacting]

REACTIONS (1)
  - ARTHRALGIA [None]
